FAERS Safety Report 7265107-2 (Version None)
Quarter: 2011Q1

REPORT INFORMATION
  Report Type: 
  Country: None (occurrence: None)
  Receive Date: 20110131
  Receipt Date: 20110120
  Transmission Date: 20110831
  Serious: Yes (Other)
  Sender: FDA-Public Use
  Company Number: US-JNJFOC-20110105654

PATIENT
  Sex: Male

DRUGS (1)
  1. INFLIXIMAB, RECOMBINANT [Suspect]
     Indication: IMMUNE SYSTEM DISORDER
     Route: 042

REACTIONS (2)
  - PLEURAL INFECTION [None]
  - MYCOBACTERIAL INFECTION [None]
